FAERS Safety Report 11895000 (Version 1)
Quarter: 2016Q1

REPORT INFORMATION
  Report Type: Spontaneous
  Country: US (occurrence: None)
  Receive Date: 20160106
  Receipt Date: 20160106
  Transmission Date: 20160526
  Serious: No
  Sender: FDA-Public Use
  Company Number: None

PATIENT
  Age: 52 Year
  Sex: Female
  Weight: 86.18 kg

DRUGS (10)
  1. ESCITALOPRAM [Concomitant]
     Active Substance: ESCITALOPRAM OXALATE
  2. SAXENDA [Concomitant]
     Active Substance: LIRAGLUTIDE
  3. ADVIL [Concomitant]
     Active Substance: IBUPROFEN
  4. LOSARTIN [Concomitant]
     Active Substance: LOSARTAN
  5. MODAFINIL. [Concomitant]
     Active Substance: MODAFINIL
  6. BYSTOLIC [Suspect]
     Active Substance: NEBIVOLOL HYDROCHLORIDE
     Indication: HYPERTENSION
     Dosage: 1 PILL
     Route: 048
  7. BUPROPRION [Concomitant]
     Active Substance: BUPROPION
  8. FEMHRT [Concomitant]
     Active Substance: ETHINYL ESTRADIOL\NORETHINDRONE ACETATE
  9. MULTI-VITAMIN [Concomitant]
     Active Substance: .ALPHA.-TOCOPHEROL ACETATE, DL-\ASCORBIC ACID\CYANOCOBALAMIN\FLUORIDE ION\FOLIC ACID\NIACIN\PYRIDOXINE\RIBOFLAVIN\THIAMINE\VITAMIN A\VITAMIN D
  10. BIOTIN [Concomitant]
     Active Substance: BIOTIN

REACTIONS (2)
  - Myalgia [None]
  - Muscular weakness [None]

NARRATIVE: CASE EVENT DATE: 20151202
